FAERS Safety Report 19234578 (Version 2)
Quarter: 2021Q2

REPORT INFORMATION
  Report Type: Spontaneous
  Country: US (occurrence: US)
  Receive Date: 20210508
  Receipt Date: 20210611
  Transmission Date: 20210717
  Serious: No
  Sender: FDA-Public Use
  Company Number: US-ORGANON-O2104USA001218

PATIENT
  Age: 23 Year
  Sex: Female
  Weight: 142.4 kg

DRUGS (2)
  1. NEXPLANON [Suspect]
     Active Substance: ETONOGESTREL
     Indication: CONTRACEPTION
     Dosage: LEFT UPPER ARM
     Route: 059
     Dates: start: 20210408, end: 20210409
  2. NEXPLANON [Suspect]
     Active Substance: ETONOGESTREL
     Dosage: 1 IMPLANT
     Route: 059
     Dates: start: 20210409

REACTIONS (5)
  - Device malfunction [Recovered/Resolved]
  - Device expulsion [Recovered/Resolved]
  - Wrong technique in product usage process [Unknown]
  - Complication of device insertion [Recovered/Resolved]
  - Poor quality device used [Unknown]

NARRATIVE: CASE EVENT DATE: 20210408
